FAERS Safety Report 9435670 (Version 1)
Quarter: 2013Q3

REPORT INFORMATION
  Report Type: Spontaneous
  Country: US (occurrence: US)
  Receive Date: 20130730
  Receipt Date: 20130730
  Transmission Date: 20140515
  Serious: Yes (Other)
  Sender: FDA-Public Use
  Company Number: A1034976A

PATIENT
  Age: 64 Year
  Sex: Female

DRUGS (1)
  1. SODIUM FLUORIDE + POTASSIUM NITRATE [Suspect]
     Indication: DENTAL CLEANING
     Route: 004

REACTIONS (2)
  - Coeliac disease [None]
  - Condition aggravated [None]
